FAERS Safety Report 4385952-0 (Version None)
Quarter: 2004Q2

REPORT INFORMATION
  Report Type: 
  Country: None (occurrence: None)
  Receive Date: 20040607
  Receipt Date: 20040205
  Transmission Date: 20050107
  Serious: Yes (Other)
  Sender: FDA-Public Use
  Company Number: 358385

PATIENT
  Sex: Female

DRUGS (3)
  1. ACCUTANE [Suspect]
     Dosage: ORAL
     Route: 048
     Dates: start: 20030615
  2. TRIMETHOPRIM + SULFAMETHOXAZOLE [Suspect]
     Indication: CYSTITIS
     Dosage: ORAL
     Route: 048
  3. YASMIN (DROSPIRENONE/ETHINYUL ESTRADIOL) [Concomitant]

REACTIONS (11)
  - BENIGN INTRACRANIAL HYPERTENSION [None]
  - CYSTITIS [None]
  - DEAFNESS UNILATERAL [None]
  - DRUG INTERACTION [None]
  - HYPERSENSITIVITY [None]
  - ILL-DEFINED DISORDER [None]
  - INCOHERENT [None]
  - LOSS OF CONSCIOUSNESS [None]
  - MENINGITIS [None]
  - TINNITUS [None]
  - VOMITING [None]
